FAERS Safety Report 4654684-3 (Version None)
Quarter: 2005Q2

REPORT INFORMATION
  Report Type: 
  Country: None (occurrence: None)
  Receive Date: 20050505
  Receipt Date: 20050505
  Transmission Date: 20051028
  Serious: Yes (Other)
  Sender: FDA-Public Use
  Company Number: None

PATIENT
  Sex: Female
  Weight: 60 kg

DRUGS (3)
  1. CARBOPLATIN [Suspect]
     Indication: SMALL CELL LUNG CANCER STAGE UNSPECIFIED
     Dates: start: 20050328
  2. ETOPOSIDE [Suspect]
     Dosage: 100 MG/M2
  3. RADIATION THERAPY [Suspect]

REACTIONS (3)
  - DEHYDRATION [None]
  - RADIATION OESOPHAGITIS [None]
  - WHITE BLOOD CELL COUNT DECREASED [None]
